FAERS Safety Report 5902066-6 (Version None)
Quarter: 2008Q3

REPORT INFORMATION
  Report Type: 
  Country: None (occurrence: None)
  Receive Date: 20080929
  Receipt Date: 20080917
  Transmission Date: 20090109
  Serious: Yes (Death, Hospitalization, Other)
  Sender: FDA-Public Use
  Company Number: US-PFIZER INC-2008022310

PATIENT
  Age: 58 Year
  Sex: Male

DRUGS (5)
  1. SUTENT [Suspect]
     Indication: THYROID CANCER
     Route: 048
     Dates: start: 20070807, end: 20080219
  2. ASPIRIN [Concomitant]
  3. LEVOTHYROXINE SODIUM [Concomitant]
  4. AMLODIPINE [Concomitant]
  5. VITACAL [Concomitant]

REACTIONS (4)
  - HEPATIC FAILURE [None]
  - LEFT VENTRICULAR DYSFUNCTION [None]
  - RENAL FAILURE [None]
  - RESPIRATORY FAILURE [None]
